FAERS Safety Report 17723510 (Version 2)
Quarter: 2020Q2

REPORT INFORMATION
  Report Type: Other
  Country: DE (occurrence: DE)
  Receive Date: 20200429
  Receipt Date: 20200506
  Transmission Date: 20200714
  Serious: Yes (Life-Threatening, Other)
  Sender: FDA-Public Use
  Company Number: DE-GLENMARK PHARMACEUTICALS-2020GMK047552

PATIENT

DRUGS (6)
  1. MIRTAZAPIN [Interacting]
     Active Substance: MIRTAZAPINE
     Indication: SLEEP DISORDER
     Dosage: 30 MILLIGRAM, 1 TO 2 TIMES A DAY (1-2 X TAGLICH)
     Route: 065
     Dates: start: 2018
  2. RESTEX [Interacting]
     Active Substance: BENSERAZIDE\LEVODOPA
     Indication: RESTLESS LEGS SYNDROME
     Dosage: 125 MILLIGRAM, OD
     Route: 065
     Dates: start: 2019
  3. NOVALGIN (METAMIZOLE SODIUM) [Interacting]
     Active Substance: METAMIZOLE SODIUM
     Indication: PRODUCT USED FOR UNKNOWN INDICATION
     Dosage: UNK, TID (3 X TAGLICH)
     Route: 065
  4. PRAMIPEXOLE DIHYDROCHLORIDE. [Interacting]
     Active Substance: PRAMIPEXOLE DIHYDROCHLORIDE
     Indication: SEXUAL DYSFUNCTION
     Dosage: 0.18 MILLIGRAM, QD (1X ZUR NACHT)
     Route: 065
     Dates: start: 20200114
  5. GABAPENTIN. [Suspect]
     Active Substance: GABAPENTIN
     Indication: BACK PAIN
     Dosage: 600 MILLIGRAM, OD
     Route: 065
     Dates: start: 2018
  6. CYMBALTA [Interacting]
     Active Substance: DULOXETINE HYDROCHLORIDE
     Indication: INTERVERTEBRAL DISC DISORDER
     Dosage: 60 MILLIGRAM, OD
     Route: 065
     Dates: start: 2015

REACTIONS (2)
  - Mental impairment [Not Recovered/Not Resolved]
  - Personality change [Not Recovered/Not Resolved]
